FAERS Safety Report 7076517-0 (Version None)
Quarter: 2010Q4

REPORT INFORMATION
  Report Type: 
  Country: None (occurrence: None)
  Receive Date: 20101101
  Receipt Date: 20101025
  Transmission Date: 20110411
  Serious: Yes (Hospitalization, Other)
  Sender: FDA-Public Use
  Company Number: US-ELI_LILLY_AND_COMPANY-US200906005703

PATIENT
  Sex: Male
  Weight: 122.45 kg

DRUGS (7)
  1. BYETTA [Suspect]
     Dosage: 5 UG, 2/D
     Dates: start: 20060921
  2. BYETTA [Suspect]
     Dosage: 10 UG, 2/D
     Route: 058
     Dates: end: 20080507
  3. METFORMIN [Concomitant]
     Dosage: 1000 MG, 2/D
     Route: 048
  4. GLIPIZIDE [Concomitant]
     Dosage: 10 MG, 2/D
     Route: 048
  5. VYTORIN [Concomitant]
     Dosage: UNK, DAILY (1/D)
     Route: 048
  6. LISINOPRIL [Concomitant]
     Dosage: 20 MG, DAILY (1/D)
     Dates: end: 20080501
  7. ASPIRIN [Concomitant]
     Dosage: 81 MG, DAILY (1/D)
     Route: 048

REACTIONS (3)
  - ACUTE PRERENAL FAILURE [None]
  - DEHYDRATION [None]
  - PANCREATITIS [None]
